FAERS Safety Report 9428828 (Version 1)
Quarter: 2013Q3

REPORT INFORMATION
  Report Type: Spontaneous
  Country: US (occurrence: US)
  Receive Date: 20130730
  Receipt Date: 20130730
  Transmission Date: 20140515
  Serious: Yes (Other)
  Sender: FDA-Public Use
  Company Number: US-ELI_LILLY_AND_COMPANY-US201307007756

PATIENT
  Age: 33 Year
  Sex: Female

DRUGS (2)
  1. CYMBALTA [Suspect]
     Indication: DEPRESSION
     Dosage: 60 MG, QD
     Dates: end: 20130712
  2. CYMBALTA [Suspect]
     Indication: NEURALGIA

REACTIONS (12)
  - Dyspnoea [Unknown]
  - Panic attack [Unknown]
  - Hot flush [Unknown]
  - Fear [Unknown]
  - Bipolar disorder [Unknown]
  - Disturbance in attention [Unknown]
  - Nervousness [Unknown]
  - Feeling abnormal [Unknown]
  - Dizziness [Unknown]
  - Insomnia [Unknown]
  - Nausea [Unknown]
  - Drug withdrawal syndrome [Unknown]
